FAERS Safety Report 13127225 (Version 1)
Quarter: 2017Q1

REPORT INFORMATION
  Report Type: Spontaneous
  Country: US (occurrence: US)
  Receive Date: 20170118
  Receipt Date: 20170118
  Transmission Date: 20170428
  Serious: No
  Sender: FDA-Public Use
  Company Number: US-ROCHE-1701630

PATIENT
  Sex: Male

DRUGS (9)
  1. RITUXAN [Suspect]
     Active Substance: RITUXIMAB
     Indication: NON-HODGKIN^S LYMPHOMA
     Route: 065
  2. IFOSFAMIDE. [Concomitant]
     Active Substance: IFOSFAMIDE
  3. ETOPOSIDE. [Concomitant]
     Active Substance: ETOPOSIDE
  4. PREDNISONE. [Concomitant]
     Active Substance: PREDNISONE
  5. DOXORUBICIN [Concomitant]
     Active Substance: DOXORUBICIN
  6. CARBOPLATIN. [Concomitant]
     Active Substance: CARBOPLATIN
  7. DEXAMETHASONE. [Concomitant]
     Active Substance: DEXAMETHASONE
  8. VINCRISTINE [Concomitant]
     Active Substance: VINCRISTINE
  9. CYCLOPHOSPHAMIDE. [Concomitant]
     Active Substance: CYCLOPHOSPHAMIDE

REACTIONS (2)
  - No adverse event [Unknown]
  - Drug ineffective [Unknown]
